FAERS Safety Report 16707269 (Version 2)
Quarter: 2019Q3

REPORT INFORMATION
  Report Type: Report from Study
  Country: US (occurrence: US)
  Receive Date: 20190815
  Receipt Date: 20190829
  Transmission Date: 20191004
  Serious: Yes (Hospitalization, Other)
  Sender: FDA-Public Use
  Company Number: US-EISAI MEDICAL RESEARCH-EC-2019-055930

PATIENT
  Age: 65 Year
  Sex: Male
  Weight: 55 kg

DRUGS (13)
  1. ELIQUIS [Suspect]
     Active Substance: APIXABAN
     Dosage: FREQUENCY AND DOSING NOT PROVIDED
     Route: 065
     Dates: start: 2019
  2. VALIUM [Concomitant]
     Active Substance: DIAZEPAM
  3. ZOFRAN [Concomitant]
     Active Substance: ONDANSETRON HYDROCHLORIDE
  4. LENVIMA [Suspect]
     Active Substance: LENVATINIB
     Indication: HEPATOCELLULAR CARCINOMA
     Route: 048
     Dates: start: 20190424, end: 201907
  5. LENVIMA [Suspect]
     Active Substance: LENVATINIB
     Route: 048
     Dates: start: 201907, end: 201908
  6. FLOMAX [Concomitant]
     Active Substance: TAMSULOSIN HYDROCHLORIDE
  7. PREVACID [Concomitant]
     Active Substance: LANSOPRAZOLE
  8. NORVASC [Concomitant]
     Active Substance: AMLODIPINE BESYLATE
  9. MIRTAZAPINE. [Concomitant]
     Active Substance: MIRTAZAPINE
  10. ELIQUIS [Suspect]
     Active Substance: APIXABAN
     Indication: PRODUCT USED FOR UNKNOWN INDICATION
     Dosage: FREQUENCY AND DOSING NOT PROVIDED
     Route: 065
     Dates: end: 2019
  11. VITAMIN D [Concomitant]
     Active Substance: VITAMIN D NOS
  12. METOPROLOL. [Concomitant]
     Active Substance: METOPROLOL
  13. TRAMADOL-ACETAMINOPHEN [Concomitant]
     Active Substance: ACETAMINOPHEN\TRAMADOL

REACTIONS (24)
  - Pneumonia [Unknown]
  - Weight decreased [Not Recovered/Not Resolved]
  - Decreased appetite [Unknown]
  - Rash [Unknown]
  - Pulmonary embolism [Unknown]
  - Nausea [Unknown]
  - Constipation [Not Recovered/Not Resolved]
  - Haematochezia [Unknown]
  - Paraesthesia [Unknown]
  - Heart rate increased [Unknown]
  - Tumour pain [Not Recovered/Not Resolved]
  - Malignant neoplasm progression [Unknown]
  - Tinnitus [Unknown]
  - Blood pressure diastolic increased [Unknown]
  - Dizziness [Unknown]
  - Fatigue [Unknown]
  - Hypotension [Unknown]
  - Oral pain [Unknown]
  - Complication associated with device [Unknown]
  - Diarrhoea [Not Recovered/Not Resolved]
  - Thrombosis [Unknown]
  - Haemorrhoids [Unknown]
  - Pain [Unknown]
  - Epistaxis [Recovered/Resolved]

NARRATIVE: CASE EVENT DATE: 2019
